FAERS Safety Report 25501594 (Version 1)
Quarter: 2025Q3

REPORT INFORMATION
  Report Type: Report from Study
  Country: US (occurrence: US)
  Receive Date: 20250701
  Receipt Date: 20250701
  Transmission Date: 20251021
  Serious: Yes (Hospitalization, Other)
  Sender: ABBVIE
  Company Number: US-ABBVIE-6308316

PATIENT
  Age: 58 Year
  Sex: Female

DRUGS (2)
  1. SKYRIZI [Suspect]
     Active Substance: RISANKIZUMAB-RZAA
     Indication: Psoriasis
     Route: 058
     Dates: start: 20250226, end: 202504
  2. SKYRIZI [Suspect]
     Active Substance: RISANKIZUMAB-RZAA
     Route: 058
     Dates: start: 202505

REACTIONS (15)
  - Multiple sclerosis [Unknown]
  - Pneumonia [Recovered/Resolved]
  - Arthralgia [Not Recovered/Not Resolved]
  - Sinusitis [Recovering/Resolving]
  - Multiple allergies [Unknown]
  - Allergic respiratory symptom [Unknown]
  - Anxiety [Recovering/Resolving]
  - Sitophobia [Unknown]
  - Taste disorder [Unknown]
  - Arthritis [Unknown]
  - Burning sensation [Unknown]
  - Joint dislocation [Unknown]
  - Fall [Recovering/Resolving]
  - Chronic obstructive pulmonary disease [Recovering/Resolving]
  - Underweight [Recovering/Resolving]

NARRATIVE: CASE EVENT DATE: 20250101
